FAERS Safety Report 17241762 (Version 1)
Quarter: 2020Q1

REPORT INFORMATION
  Report Type: Spontaneous
  Country: KR (occurrence: KR)
  Receive Date: 20200107
  Receipt Date: 20200107
  Transmission Date: 20200409
  Serious: Yes (Disabling, Other)
  Sender: FDA-Public Use
  Company Number: KR-EXELA PHARMA SCIENCES, LLC-2019EXL00015

PATIENT
  Sex: Male

DRUGS (1)
  1. GANCICLOVIR. [Suspect]
     Active Substance: GANCICLOVIR
     Indication: RETINITIS
     Dosage: 8-FOLD HIGHER THAN USUAL (15MG/0.3 ML INSTEAD OF 2MG/0.04 ML)

REACTIONS (5)
  - Retinopathy [Not Recovered/Not Resolved]
  - Accidental overdose [Not Recovered/Not Resolved]
  - Blindness [Not Recovered/Not Resolved]
  - Optic atrophy [Not Recovered/Not Resolved]
  - Toxicity to various agents [Not Recovered/Not Resolved]
